FAERS Safety Report 5127839-1 (Version None)
Quarter: 2006Q4

REPORT INFORMATION
  Report Type: 
  Country: None (occurrence: None)
  Receive Date: 20061016
  Receipt Date: 20061010
  Transmission Date: 20070319
  Serious: Yes (Other)
  Sender: FDA-Public Use
  Company Number: US-JNJFOC-20061002733

PATIENT
  Age: 22 Month
  Sex: Female

DRUGS (2)
  1. CONCENTRATED TYLENOL INFANTS' CHERRY [Suspect]
  2. CONCENTRATED TYLENOL INFANTS' CHERRY [Suspect]
     Indication: PYREXIA

REACTIONS (1)
  - HALLUCINATION [None]
